FAERS Safety Report 8523439-1 (Version None)
Quarter: 2012Q3

REPORT INFORMATION
  Report Type: 
  Country: None (occurrence: None)
  Receive Date: 20120720
  Receipt Date: 20070828
  Transmission Date: 20120928
  Serious: Yes (Other)
  Sender: FDA-Public Use
  Company Number: CO-PFIZER INC-2012173825

PATIENT
  Age: 70 Year
  Sex: Male

DRUGS (6)
  1. HYDROCHLOROTHIAZIDE [Concomitant]
     Dosage: 25 MG, EVERY 24 HOURS
  2. AMLODIPINE [Concomitant]
     Dosage: 5 MG, EVERY 12 HOURS
  3. VERAPAMIL [Concomitant]
     Dosage: 120 MG, 2X/DAY
  4. LIPITOR [Suspect]
     Dosage: 10 MG, EVERY 24 HOURS
  5. ACETYLSALICYLIC ACID [Concomitant]
     Dosage: 100 MG, EVERY 24 HOURS
  6. LOSARTAN [Concomitant]
     Dosage: 50 MG, EVERY 12 HOURS

REACTIONS (4)
  - HYPERTENSIVE EMERGENCY [None]
  - ALCOHOLISM [None]
  - BONE PAIN [None]
  - MUSCULOSKELETAL CHEST PAIN [None]
